FAERS Safety Report 9955620 (Version 1)
Quarter: 2014Q1

REPORT INFORMATION
  Report Type: Report from Study
  Country: US (occurrence: US)
  Receive Date: 20140304
  Receipt Date: 20140304
  Transmission Date: 20141002
  Serious: No
  Sender: FDA-Public Use
  Company Number: US-ABBVIE-13P-163-1082732-00

PATIENT
  Age: 46 Year
  Sex: Female

DRUGS (5)
  1. HUMIRA [Suspect]
     Indication: CROHN^S DISEASE
     Dosage: LOADING DOSE
     Dates: start: 201209, end: 201209
  2. HUMIRA [Suspect]
     Dosage: LOADING DOSE
     Dates: start: 201211, end: 201211
  3. HUMIRA [Suspect]
  4. MULTIVITAMIN [Concomitant]
     Indication: ANAEMIA
     Dosage: DAILY
     Route: 048
  5. UNKNOWN BIG RED PILLS [Concomitant]
     Indication: CROHN^S DISEASE

REACTIONS (1)
  - Ulcer haemorrhage [Recovered/Resolved]
